FAERS Safety Report 23948903 (Version 5)
Quarter: 2024Q3

REPORT INFORMATION
  Report Type: Report from Study
  Country: SA (occurrence: SA)
  Receive Date: 20240607
  Receipt Date: 20240913
  Transmission Date: 20241017
  Serious: Yes (Other)
  Sender: ROCHE
  Company Number: SA-ROCHE-3506827

PATIENT
  Age: 6 Year
  Sex: Male
  Weight: 23.75 kg

DRUGS (3)
  1. EVRYSDI [Suspect]
     Active Substance: RISDIPLAM
     Indication: Spinal muscular atrophy
     Dosage: 4.5 MG
     Route: 048
     Dates: start: 20230929
  2. EVRYSDI [Suspect]
     Active Substance: RISDIPLAM
     Route: 048
  3. CHOLECALCIFEROL [Concomitant]
     Active Substance: CHOLECALCIFEROL
     Indication: Spinal muscular atrophy
     Route: 048
     Dates: start: 202309

REACTIONS (5)
  - Product monitoring error [Unknown]
  - Weight increased [Unknown]
  - Oedema peripheral [Unknown]
  - Nasopharyngitis [Recovered/Resolved]
  - Pyrexia [Recovered/Resolved]

NARRATIVE: CASE EVENT DATE: 20240131
